FAERS Safety Report 13963336 (Version 3)
Quarter: 2017Q4

REPORT INFORMATION
  Report Type: Spontaneous
  Country: US (occurrence: US)
  Receive Date: 20170913
  Receipt Date: 20171006
  Transmission Date: 20180320
  Serious: No
  Sender: FDA-Public Use
  Company Number: US-GLAXOSMITHKLINE-US2017GSK140277

PATIENT
  Age: 63 Year
  Sex: Female
  Weight: 54.88 kg

DRUGS (1)
  1. SUMATRIPTAN (SUMATRIPTAN SUCCINATE) SOLUTION FOR INJECTION IN PRE-FILL [Suspect]
     Active Substance: SUMATRIPTAN
     Indication: MIGRAINE
     Dosage: UNK
     Dates: start: 201708

REACTIONS (6)
  - Wrong technique in device usage process [Not Recovered/Not Resolved]
  - Product label confusion [Not Recovered/Not Resolved]
  - Injection site indentation [Not Recovered/Not Resolved]
  - Drug administration error [Not Recovered/Not Resolved]
  - Incorrect dose administered by device [Not Recovered/Not Resolved]
  - Product quality issue [Unknown]

NARRATIVE: CASE EVENT DATE: 201708
